FAERS Safety Report 24165696 (Version 1)
Quarter: 2024Q3

REPORT INFORMATION
  Report Type: Spontaneous
  Country: GB (occurrence: GB)
  Receive Date: 20240802
  Receipt Date: 20240802
  Transmission Date: 20241017
  Serious: Yes (Other)
  Sender: SANDOZ
  Company Number: GB-MHRA-TPP14319029C10229465YC1722357090807

PATIENT
  Age: 63 Year
  Sex: Female
  Weight: 74 kg

DRUGS (13)
  1. CLINDAMYCIN [Suspect]
     Active Substance: CLINDAMYCIN
     Indication: Ill-defined disorder
     Dosage: 150MG CAPSULES
     Route: 048
     Dates: start: 20240528, end: 20240728
  2. AMITRIPTYLINE [Concomitant]
     Active Substance: AMITRIPTYLINE
     Indication: Ill-defined disorder
     Dosage: AS PREVIOUSLY ADVISED
     Route: 065
     Dates: start: 20240518, end: 20240528
  3. AMITRIPTYLINE HYDROCHLORIDE [Concomitant]
     Active Substance: AMITRIPTYLINE HYDROCHLORIDE
     Indication: Ill-defined disorder
     Dosage: TAKE THREE TO BE TAKEN EACH NIGHT
     Route: 065
     Dates: start: 20240305
  4. Cetraben [Concomitant]
     Indication: Ill-defined disorder
     Dosage: APPLY TO THE AFFECTED AREAS OF DRY SKIN TWICE D...
     Route: 065
     Dates: start: 20240607
  5. COTRIMOXAZOLE [Concomitant]
     Active Substance: SULFAMETHOXAZOLE\TRIMETHOPRIM
     Indication: Ill-defined disorder
     Dosage: TAKE 2, TWICE A DAY FOR 5 DAYS
     Route: 065
     Dates: start: 20240730
  6. HYDROXOCOBALAMIN [Concomitant]
     Active Substance: HYDROXOCOBALAMIN
     Indication: Ill-defined disorder
     Dosage: FOR PERNICIOUS ANAEMIA (LOADING DOSE) 1MG IM 6 ...
     Route: 065
     Dates: start: 20220503
  7. NAPROXEN [Concomitant]
     Active Substance: NAPROXEN
     Indication: Ill-defined disorder
     Dosage: TAKE ONE TWICE DAILY FOR PAIN
     Route: 065
     Dates: start: 20240528, end: 20240611
  8. OMEPRAZOLE [Concomitant]
     Active Substance: OMEPRAZOLE
     Indication: Ill-defined disorder
     Dosage: TAKE TWO ONCE DAILY
     Route: 065
     Dates: start: 20240305
  9. PREGABALIN [Concomitant]
     Active Substance: PREGABALIN
     Indication: Ill-defined disorder
     Dosage: ONE EACH MORNING.
     Route: 065
     Dates: start: 20240305
  10. ALBUTEROL [Concomitant]
     Active Substance: ALBUTEROL
     Indication: Ill-defined disorder
     Dosage: INHALE ONE OR TWO PUFFS UP TO FOUR TIMES EACH D...
     Route: 065
     Dates: start: 20230210
  11. SOLIFENACIN [Concomitant]
     Active Substance: SOLIFENACIN
     Indication: Ill-defined disorder
     Dosage: TAKE ONE DAILY
     Route: 065
     Dates: start: 20240305
  12. SOPROBEC [Concomitant]
     Indication: Ill-defined disorder
     Dosage: INHALE 2 DOSES TWICE DAILY
     Route: 065
     Dates: start: 20220922
  13. VORTIOXETINE [Concomitant]
     Active Substance: VORTIOXETINE HYDROBROMIDE
     Indication: Ill-defined disorder
     Dosage: TAKE ONE DAILY
     Route: 065
     Dates: start: 20240305

REACTIONS (1)
  - Rash [Recovered/Resolved]

NARRATIVE: CASE EVENT DATE: 20240528
